FAERS Safety Report 4657343-6 (Version None)
Quarter: 2005Q2

REPORT INFORMATION
  Report Type: 
  Country: None (occurrence: None)
  Receive Date: 20050408
  Receipt Date: 20041213
  Transmission Date: 20051028
  Serious: No
  Sender: FDA-Public Use
  Company Number: 235960K04USA

PATIENT
  Age: 42 Year
  Sex: Female

DRUGS (2)
  1. REBIF [Suspect]
     Indication: MULTIPLE SCLEROSIS
     Dosage: 44 MCG, 3 IN 1 WEEKS, SUBCUTANEOUS
     Route: 058
     Dates: start: 20040606, end: 20041105
  2. WELLBUTRIN [Concomitant]

REACTIONS (9)
  - APHASIA [None]
  - CRYING [None]
  - FATIGUE [None]
  - GENERALISED ERYTHEMA [None]
  - LIVEDO RETICULARIS [None]
  - MOOD SWINGS [None]
  - RASH [None]
  - SKIN TIGHTNESS [None]
  - TREMOR [None]
